FAERS Safety Report 5786633-9 (Version None)
Quarter: 2008Q2

REPORT INFORMATION
  Report Type: 
  Country: None (occurrence: None)
  Receive Date: 20080618
  Receipt Date: 20080606
  Transmission Date: 20081010
  Serious: Yes (Other)
  Sender: FDA-Public Use
  Company Number: FABR-1000188

PATIENT
  Age: 43 Year
  Sex: Female
  Weight: 53 kg

DRUGS (1)
  1. FABRAZYME [Suspect]
     Indication: FABRY'S DISEASE
     Dosage: INTRAVENOUS
     Route: 042
     Dates: start: 20061201

REACTIONS (9)
  - ABDOMINAL PAIN [None]
  - ASTHENIA [None]
  - DEPRESSION [None]
  - HYPERSENSITIVITY [None]
  - INFLAMMATION [None]
  - NAUSEA [None]
  - PAIN OF SKIN [None]
  - SKIN NODULE [None]
  - TREMOR [None]
